FAERS Safety Report 17489756 (Version 3)
Quarter: 2020Q4

REPORT INFORMATION
  Report Type: Spontaneous
  Country: US (occurrence: US)
  Receive Date: 20200303
  Receipt Date: 20201106
  Transmission Date: 20210113
  Serious: Yes (Hospitalization, Other)
  Sender: FDA-Public Use
  Company Number: US-SHIRE-US202008113

PATIENT
  Sex: Female

DRUGS (4)
  1. GATTEX [Suspect]
     Active Substance: TEDUGLUTIDE\WATER
     Indication: PRODUCT USED FOR UNKNOWN INDICATION
     Dosage: 0.2400 UNIT UNKNOWN, FREQUENCY UNKNOWN
     Route: 058
     Dates: start: 20181010
  2. GATTEX [Suspect]
     Active Substance: TEDUGLUTIDE\WATER
     Indication: PRODUCT USED FOR UNKNOWN INDICATION
     Dosage: 0.2400 UNIT UNKNOWN, FREQUENCY UNKNOWN
     Route: 058
     Dates: start: 20181010
  3. GATTEX [Suspect]
     Active Substance: TEDUGLUTIDE\WATER
     Indication: PRODUCT USED FOR UNKNOWN INDICATION
     Dosage: 0.2400 UNIT UNKNOWN, FREQUENCY UNKNOWN
     Route: 058
     Dates: start: 20181010
  4. GATTEX [Suspect]
     Active Substance: TEDUGLUTIDE\WATER
     Indication: PRODUCT USED FOR UNKNOWN INDICATION
     Dosage: 0.2400 UNIT UNKNOWN, FREQUENCY UNKNOWN
     Route: 058
     Dates: start: 20181010

REACTIONS (3)
  - Hospitalisation [Unknown]
  - Renal failure [Not Recovered/Not Resolved]
  - Influenza [Not Recovered/Not Resolved]
